FAERS Safety Report 22783909 (Version 3)
Quarter: 2023Q4

REPORT INFORMATION
  Report Type: Spontaneous
  Country: US (occurrence: US)
  Receive Date: 20230803
  Receipt Date: 20231002
  Transmission Date: 20240109
  Serious: Yes (Life-Threatening, Other)
  Sender: FDA-Public Use
  Company Number: US-PFIZER INC-202300266654

PATIENT
  Age: 72 Year
  Sex: Male
  Weight: 80.74 kg

DRUGS (2)
  1. SOLU-CORTEF [Suspect]
     Active Substance: HYDROCORTISONE SODIUM SUCCINATE
     Dosage: 40 IU
     Dates: start: 202202
  2. SOLU-CORTEF [Suspect]
     Active Substance: HYDROCORTISONE SODIUM SUCCINATE
     Dosage: 96 IU
     Dates: end: 20221114

REACTIONS (18)
  - Myocardial infarction [Unknown]
  - Brain injury [Unknown]
  - Memory impairment [Unknown]
  - Erectile dysfunction [Unknown]
  - Renal impairment [Unknown]
  - Hepatic function abnormal [Unknown]
  - Gait disturbance [Unknown]
  - Muscle atrophy [Unknown]
  - Drug monitoring procedure not performed [Unknown]
  - Overdose [Unknown]
  - Malnutrition [Unknown]
  - Chest pain [Unknown]
  - Enuresis [Unknown]
  - Illness [Unknown]
  - Muscular weakness [Unknown]
  - Malaise [Unknown]
  - Pruritus [Recovering/Resolving]
  - Insomnia [Unknown]

NARRATIVE: CASE EVENT DATE: 20221115
